FAERS Safety Report 24740905 (Version 1)
Quarter: 2024Q4

REPORT INFORMATION
  Report Type: Spontaneous
  Country: US (occurrence: US)
  Receive Date: 20241217
  Receipt Date: 20241217
  Transmission Date: 20250115
  Serious: No
  Sender: ALVOGEN
  Company Number: US-ALVOGEN-2024095361

PATIENT
  Sex: Female

DRUGS (3)
  1. FENTANYL [Suspect]
     Active Substance: FENTANYL
     Indication: Product used for unknown indication
     Dosage: EXPIRATION: JAN-2027
     Route: 062
  2. FENTANYL [Suspect]
     Active Substance: FENTANYL
     Indication: Product used for unknown indication
     Dosage: EXPIRATION: JAN-2027
     Route: 062
  3. FENTANYL [Suspect]
     Active Substance: FENTANYL
     Indication: Product used for unknown indication
     Dosage: REFILLED YESTERDAY (19-AUG-2024)
     Route: 062

REACTIONS (4)
  - Device adhesion issue [Unknown]
  - Device malfunction [Unknown]
  - Product administered at inappropriate site [Unknown]
  - Multiple use of single-use product [Unknown]
